FAERS Safety Report 19454640 (Version 1)
Quarter: 2021Q2

REPORT INFORMATION
  Report Type: Spontaneous
  Country: FR (occurrence: FR)
  Receive Date: 20210623
  Receipt Date: 20210623
  Transmission Date: 20210717
  Serious: Yes (Other)
  Sender: FDA-Public Use
  Company Number: FR-BAUSCH-BL-2021-021001

PATIENT
  Age: 9 Year
  Sex: Female

DRUGS (7)
  1. IFOSFAMIDE. [Suspect]
     Active Substance: IFOSFAMIDE
     Indication: PANCREATOBLASTOMA
     Route: 065
     Dates: start: 20210512, end: 20210512
  2. EMEND [Suspect]
     Active Substance: APREPITANT
     Indication: PREMEDICATION
     Dosage: 80MG
     Route: 065
     Dates: start: 20210510, end: 20210510
  3. DEXAMETHASONE. [Suspect]
     Active Substance: DEXAMETHASONE
     Indication: PREMEDICATION
     Dosage: PLUS 30 MG IF NAUSEA
     Route: 065
     Dates: start: 20210510, end: 20210510
  4. ETOPOSIDE. [Suspect]
     Active Substance: ETOPOSIDE
     Indication: PANCREATOBLASTOMA
     Route: 065
     Dates: start: 20210510, end: 20210510
  5. OLANZAPINE. [Suspect]
     Active Substance: OLANZAPINE
     Indication: PREMEDICATION
     Route: 065
     Dates: start: 20210510, end: 20210510
  6. PLITICAN [Suspect]
     Active Substance: ALIZAPRIDE HYDROCHLORIDE
     Indication: PREMEDICATION
     Dosage: PLUS 30 MG IF NAUSEA
     Route: 065
     Dates: start: 20210510, end: 20210510
  7. ZOPHREN [Suspect]
     Active Substance: ONDANSETRON
     Indication: PREMEDICATION
     Dosage: 8 MG
     Route: 065
     Dates: start: 20210510, end: 20210510

REACTIONS (2)
  - Pyrexia [Recovered/Resolved]
  - Aplasia [Not Recovered/Not Resolved]

NARRATIVE: CASE EVENT DATE: 20210512
